FAERS Safety Report 12993357 (Version 1)
Quarter: 2016Q4

REPORT INFORMATION
  Report Type: Spontaneous
  Country: US (occurrence: US)
  Receive Date: 20161201
  Receipt Date: 20161201
  Transmission Date: 20170207
  Serious: No
  Sender: FDA-Public Use
  Company Number: None

PATIENT
  Sex: Female

DRUGS (1)
  1. COPAXONE [Suspect]
     Active Substance: GLATIRAMER ACETATE
     Indication: MULTIPLE SCLEROSIS
     Dosage: 40MG THREE TIMES WEEKLY SQ
     Route: 058
     Dates: start: 20160411, end: 20160915

REACTIONS (3)
  - Refusal of treatment by patient [None]
  - Urticaria [None]
  - Pruritus [None]
